FAERS Safety Report 20730805 (Version 2)
Quarter: 2024Q2

REPORT INFORMATION
  Report Type: Spontaneous
  Country: US (occurrence: US)
  Receive Date: 20220420
  Receipt Date: 20240415
  Transmission Date: 20240716
  Serious: No
  Sender: FDA-Public Use
  Company Number: US-ASTELLAS-2021US017764

PATIENT
  Age: 59 Year
  Sex: Male

DRUGS (4)
  1. LEXISCAN [Suspect]
     Active Substance: REGADENOSON
     Indication: Scan myocardial perfusion
     Dosage: UNK UNK, UNKNOWN FREQ (0.4MG/5ML) ADMINSTERED FOR 12 SEC
     Route: 065
     Dates: start: 20210504, end: 20210504
  2. LEXISCAN [Suspect]
     Active Substance: REGADENOSON
     Indication: Scan myocardial perfusion
     Dosage: UNK UNK, UNKNOWN FREQ (0.4MG/5ML) ADMINSTERED FOR 12 SEC
     Route: 065
     Dates: start: 20210504, end: 20210504
  3. LEXISCAN [Suspect]
     Active Substance: REGADENOSON
     Indication: Scan myocardial perfusion
     Dosage: UNK UNK, UNKNOWN FREQ (0.4MG/5ML) ADMINSTERED FOR 12 SEC
     Route: 065
     Dates: start: 20210504, end: 20210504
  4. LEXISCAN [Suspect]
     Active Substance: REGADENOSON
     Indication: Scan myocardial perfusion
     Dosage: UNK UNK, UNKNOWN FREQ (0.4MG/5ML) ADMINSTERED FOR 12 SEC
     Route: 065
     Dates: start: 20210504, end: 20210504

REACTIONS (2)
  - Atrioventricular block [Unknown]
  - Incorrect product administration duration [Unknown]

NARRATIVE: CASE EVENT DATE: 20210504
